FAERS Safety Report 7381746 (Version 7)
Quarter: 2013Q1

REPORT INFORMATION
  Report Type: Spontaneous
  Country: US (occurrence: US)
  Receive Date: 20100510
  Receipt Date: 20130225
  Transmission Date: 20140127
  Serious: Yes (Hospitalization, Other)
  Sender: FDA-Public Use
  Company Number: US-BAYER-201021115NA

PATIENT
  Age: 20 Year
  Sex: Female
  Weight: 90.7 kg

DRUGS (8)
  1. YASMIN [Suspect]
     Indication: CONTRACEPTION
     Dosage: UNK UNK, UNK
     Route: 048
     Dates: start: 20070918, end: 20081208
  2. YASMIN [Suspect]
     Indication: CONTRACEPTION
     Dosage: UNK
     Dates: start: 200709, end: 200805
  3. YASMIN [Suspect]
     Indication: CONTRACEPTION
     Dosage: UNK
     Dates: start: 20080206, end: 20081125
  4. ASPIRIN [ACETYLSALICYLIC ACID] [Concomitant]
     Dosage: 81 MG, UNK
     Route: 048
     Dates: start: 2008
  5. TUMS [CALCIUM CARBONATE] [Concomitant]
     Indication: DYSPEPSIA
     Dosage: UNK
     Dates: start: 2009
  6. NAPROXEN [Concomitant]
  7. ACE INHIBITOR NOS [Concomitant]
  8. LOTENSIN [Concomitant]

REACTIONS (6)
  - Deep vein thrombosis [Recovered/Resolved]
  - Deep vein thrombosis [Recovered/Resolved]
  - Supraventricular tachycardia [None]
  - Supraventricular tachycardia [None]
  - Cholecystectomy [None]
  - Cholecystitis chronic [None]
